FAERS Safety Report 8073180-7 (Version None)
Quarter: 2012Q1

REPORT INFORMATION
  Report Type: 
  Country: None (occurrence: None)
  Receive Date: 20120123
  Receipt Date: 20120123
  Transmission Date: 20120608
  Serious: No
  Sender: FDA-Public Use
  Company Number: None

PATIENT
  Age: 61 Year
  Sex: Male
  Weight: 101.3 kg

DRUGS (1)
  1. TELAPREVIR [Suspect]
     Indication: HEPATITIS C
     Dosage: MG PO; ML SQ
     Route: 048
     Dates: start: 20111104

REACTIONS (6)
  - PRURITUS [None]
  - CONDITION AGGRAVATED [None]
  - FATIGUE [None]
  - DIARRHOEA [None]
  - RASH [None]
  - GOUT [None]
